FAERS Safety Report 24775160 (Version 1)
Quarter: 2024Q4

REPORT INFORMATION
  Report Type: Report from Study
  Country: US (occurrence: US)
  Receive Date: 20241226
  Receipt Date: 20241226
  Transmission Date: 20250115
  Serious: Yes (Hospitalization, Other)
  Sender: CSL BEHRING
  Company Number: US-BEH-2024188735

PATIENT
  Age: 85 Year
  Sex: Male
  Weight: 83 kg

DRUGS (2)
  1. PRIVIGEN [Suspect]
     Active Substance: HUMAN IMMUNOGLOBULIN G
     Indication: Product used for unknown indication
     Dosage: 10 G
     Route: 042
     Dates: start: 20231121
  2. PRIVIGEN [Suspect]
     Active Substance: HUMAN IMMUNOGLOBULIN G
     Dosage: 10 G
     Route: 042
     Dates: start: 20231227

REACTIONS (4)
  - Plasma cell myeloma [Fatal]
  - Drug ineffective [Unknown]
  - Influenza [Unknown]
  - Norovirus infection [Unknown]

NARRATIVE: CASE EVENT DATE: 20240104
